FAERS Safety Report 11609683 (Version 3)
Quarter: 2016Q1

REPORT INFORMATION
  Report Type: Report from Study
  Country: BR (occurrence: BR)
  Receive Date: 20151007
  Receipt Date: 20160107
  Transmission Date: 20160525
  Serious: Yes (Hospitalization, Other)
  Sender: FDA-Public Use
  Company Number: PHHY2015BR109111

PATIENT
  Sex: Female
  Weight: 58 kg

DRUGS (2)
  1. EXJADE [Suspect]
     Active Substance: DEFERASIROX
     Indication: SICKLE CELL ANAEMIA
     Dosage: 20 MG/KG QD (2 TABLETS OF 500 MG)
     Route: 048
     Dates: start: 2012
  2. EXJADE [Suspect]
     Active Substance: DEFERASIROX
     Dosage: 25 MG/KG, QD (3 DF OF 500 MG)
     Route: 048

REACTIONS (14)
  - Nail disorder [Unknown]
  - Dysgeusia [Unknown]
  - Weight decreased [Unknown]
  - Pain [Unknown]
  - Renal disorder [Unknown]
  - Abdominal distension [Recovered/Resolved]
  - Pain in extremity [Unknown]
  - Pneumonia [Unknown]
  - Weight increased [Unknown]
  - Headache [Unknown]
  - Cough [Unknown]
  - Dyspepsia [Unknown]
  - Fatigue [Unknown]
  - Abdominal pain upper [Unknown]
